FAERS Safety Report 5062437-X (Version None)
Quarter: 2006Q3

REPORT INFORMATION
  Report Type: 
  Country: None (occurrence: None)
  Receive Date: 20060721
  Receipt Date: 20060704
  Transmission Date: 20061208
  Serious: Yes (Death, Life-Threatening, Disabling)
  Sender: FDA-Public Use
  Company Number: US_021290393

PATIENT
  Age: 60 Year
  Sex: Female
  Weight: 50 kg

DRUGS (4)
  1. GEMZAR [Suspect]
     Indication: PANCREATIC CARCINOMA
     Dosage: 1400 MG DAILY (1/D) INTRAVENOUS
     Route: 042
     Dates: start: 20020327, end: 20020327
  2. FLUOROURACIL [Concomitant]
  3. ZOFRAN [Concomitant]
  4. KADIAN [Concomitant]

REACTIONS (12)
  - ANOREXIA [None]
  - ASCITES [None]
  - BLOOD PRESSURE DECREASED [None]
  - CARDIAC DISORDER [None]
  - CARDIAC FAILURE [None]
  - CEREBRAL INFARCTION [None]
  - DISSEMINATED INTRAVASCULAR COAGULATION [None]
  - MOUTH BREATHING [None]
  - MULTI-ORGAN FAILURE [None]
  - ORAL MUCOSAL PETECHIAE [None]
  - PETECHIAE [None]
  - PLATELET COUNT DECREASED [None]
